FAERS Safety Report 19472900 (Version 1)
Quarter: 2021Q2

REPORT INFORMATION
  Report Type: Spontaneous
  Country: US (occurrence: US)
  Receive Date: 20210629
  Receipt Date: 20210629
  Transmission Date: 20210717
  Serious: No
  Sender: FDA-Public Use
  Company Number: NVSC2021US142514

PATIENT
  Sex: Male

DRUGS (1)
  1. VOLTAREN [Suspect]
     Active Substance: DICLOFENAC SODIUM
     Indication: PRODUCT USED FOR UNKNOWN INDICATION
     Dosage: 150 G
     Route: 065
     Dates: start: 20210617, end: 20210618

REACTIONS (5)
  - Hypopnoea [Unknown]
  - Illness [Unknown]
  - Feeling abnormal [Unknown]
  - Rash macular [Unknown]
  - Lip swelling [Unknown]

NARRATIVE: CASE EVENT DATE: 20210619
